FAERS Safety Report 6971821-6 (Version None)
Quarter: 2010Q3

REPORT INFORMATION
  Report Type: 
  Country: None (occurrence: None)
  Receive Date: 20100903
  Receipt Date: 20100821
  Transmission Date: 20110219
  Serious: Yes (Other)
  Sender: FDA-Public Use
  Company Number: AUR-APL-2010-01254

PATIENT
  Age: 52 Year
  Sex: Male
  Weight: 76 kg

DRUGS (8)
  1. BISOPROLOL FUMARATE [Suspect]
     Dosage: 10MG - DAILY - ORAL
     Route: 048
     Dates: start: 20100317, end: 20100319
  2. NEBIVOLOL HCL [Suspect]
     Dosage: 7.5MG - DAILY - ORAL
     Route: 048
     Dates: start: 20100319, end: 20100408
  3. ASPIRIN [Concomitant]
  4. ATORVASTATIN CALCIUM [Concomitant]
  5. FUROSEMIDE 20MG, 40MG [Concomitant]
  6. GLYCERYL TRINITRATE ^1DF^ [Concomitant]
  7. RAMIPRIL [Concomitant]
  8. SPIRONOLACTONE [Concomitant]

REACTIONS (3)
  - PERIPHERAL COLDNESS [None]
  - RENAL IMPAIRMENT [None]
  - SKIN DISCOLOURATION [None]
